FAERS Safety Report 12603535 (Version 1)
Quarter: 2016Q3

REPORT INFORMATION
  Report Type: Spontaneous
  Country: US (occurrence: US)
  Receive Date: 20160728
  Receipt Date: 20160728
  Transmission Date: 20161109
  Serious: No
  Sender: FDA-Public Use
  Company Number: US-009507513-1607USA005165

PATIENT
  Age: 27 Year
  Sex: Female
  Weight: 157.37 kg

DRUGS (1)
  1. NEXPLANON [Suspect]
     Active Substance: ETONOGESTREL
     Indication: CONTRACEPTION
     Dosage: DOSE/FREQUENCY: 68 MG/ EVERY 3 YEARS
     Route: 059
     Dates: start: 20130708, end: 20160708

REACTIONS (3)
  - Difficulty removing drug implant [Recovered/Resolved]
  - Device kink [Recovered/Resolved]
  - Complication associated with device [Recovered/Resolved]

NARRATIVE: CASE EVENT DATE: 20160708
